FAERS Safety Report 14523924 (Version 2)
Quarter: 2018Q1

REPORT INFORMATION
  Report Type: Report from Study
  Country: US (occurrence: US)
  Receive Date: 20180213
  Receipt Date: 20180308
  Transmission Date: 20180509
  Serious: No
  Sender: FDA-Public Use
  Company Number: US-B.I. PHARMACEUTICALS,INC./RIDGEFIELD-2018-BI-007425

PATIENT
  Age: 80 Year
  Sex: Female

DRUGS (3)
  1. OFEV [Suspect]
     Active Substance: NINTEDANIB
     Indication: IDIOPATHIC PULMONARY FIBROSIS
     Route: 065
     Dates: start: 201801
  2. OFEV [Suspect]
     Active Substance: NINTEDANIB
     Route: 065
     Dates: start: 20180223
  3. OFEV [Suspect]
     Active Substance: NINTEDANIB
     Route: 065
     Dates: start: 20180109, end: 201801

REACTIONS (6)
  - Nausea [Unknown]
  - Decreased appetite [Unknown]
  - Haemorrhoidal haemorrhage [Unknown]
  - Vomiting [Unknown]
  - Vomiting [Recovered/Resolved]
  - Vomiting [Unknown]

NARRATIVE: CASE EVENT DATE: 20180109
